FAERS Safety Report 6257709-7 (Version None)
Quarter: 2009Q3

REPORT INFORMATION
  Report Type: 
  Country: None (occurrence: None)
  Receive Date: 20090706
  Receipt Date: 20090702
  Transmission Date: 20100115
  Serious: Yes (Death)
  Sender: FDA-Public Use
  Company Number: DE-ROCHE-641790

PATIENT
  Age: 56 Year
  Sex: Female

DRUGS (1)
  1. CAPECITABINE [Suspect]
     Route: 048
     Dates: start: 20080213, end: 20080304

REACTIONS (1)
  - BREAST CANCER METASTATIC [None]
